FAERS Safety Report 6003977-6 (Version None)
Quarter: 2008Q4

REPORT INFORMATION
  Report Type: 
  Country: None (occurrence: None)
  Receive Date: 20081216
  Receipt Date: 20081204
  Transmission Date: 20090506
  Serious: Yes (Other)
  Sender: FDA-Public Use
  Company Number: DE-BAYER-200832556GPV

PATIENT
  Age: 16 Year
  Sex: Female

DRUGS (1)
  1. MINISISTON 20 FEM [Suspect]
     Indication: DRUG USE FOR UNKNOWN INDICATION
     Route: 048
     Dates: start: 20081125

REACTIONS (1)
  - SYNCOPE [None]
